FAERS Safety Report 11534198 (Version 2)
Quarter: 2015Q4

REPORT INFORMATION
  Report Type: Spontaneous
  Country: US (occurrence: US)
  Receive Date: 20150922
  Receipt Date: 20151123
  Transmission Date: 20160304
  Serious: Yes (Hospitalization, Other)
  Sender: FDA-Public Use
  Company Number: US-ROCHE-1635722

PATIENT
  Sex: Male
  Weight: 83.99 kg

DRUGS (1)
  1. ESBRIET [Suspect]
     Active Substance: PIRFENIDONE
     Indication: IDIOPATHIC PULMONARY FIBROSIS
     Dosage: 3 CAPS THRICE DAILY
     Route: 048
     Dates: start: 20150122

REACTIONS (4)
  - Ageusia [Unknown]
  - White blood cell count increased [Unknown]
  - Gallbladder disorder [Unknown]
  - Leukaemia [Unknown]
